FAERS Safety Report 20150819 (Version 1)
Quarter: 2021Q4

REPORT INFORMATION
  Report Type: Spontaneous
  Country: DE (occurrence: DE)
  Receive Date: 20211206
  Receipt Date: 20211206
  Transmission Date: 20220303
  Serious: Yes (Hospitalization)
  Sender: FDA-Public Use
  Company Number: DE-NOVARTISPH-NVSC2021DE276363

PATIENT
  Age: 11 Year
  Sex: Male
  Weight: 49 kg

DRUGS (3)
  1. METHOTREXATE [Suspect]
     Active Substance: METHOTREXATE
     Indication: Juvenile idiopathic arthritis
     Dosage: 7.5 MG, QW
     Route: 058
     Dates: start: 20140205
  2. HUMIRA [Suspect]
     Active Substance: ADALIMUMAB
     Indication: Juvenile idiopathic arthritis
     Dosage: 40 MG, BIW
     Route: 058
     Dates: start: 20180208, end: 20190827
  3. VALPROATE [Suspect]
     Active Substance: VALPROIC ACID
     Indication: Petit mal epilepsy
     Dosage: UNK
     Route: 048
     Dates: start: 2018

REACTIONS (6)
  - Herpes virus infection [Unknown]
  - Infection [Unknown]
  - Prerenal failure [Recovered/Resolved]
  - Inflammatory bowel disease [Unknown]
  - Oral herpes [Unknown]
  - Tonsillitis [Recovered/Resolved]

NARRATIVE: CASE EVENT DATE: 20200101
